FAERS Safety Report 17030064 (Version 1)
Quarter: 2019Q4

REPORT INFORMATION
  Report Type: Report from Study
  Country: DE (occurrence: DE)
  Receive Date: 20191114
  Receipt Date: 20191114
  Transmission Date: 20200122
  Serious: Yes (Other)
  Sender: FDA-Public Use
  Company Number: PHHY2015DE042147

PATIENT
  Age: 25 Year
  Sex: Female

DRUGS (8)
  1. GILENYA [Suspect]
     Active Substance: FINGOLIMOD HYDROCHLORIDE
     Indication: MULTIPLE SCLEROSIS
     Dosage: QD
     Route: 048
     Dates: start: 20141204
  2. TRIAMCINOLONE [Concomitant]
     Active Substance: TRIAMCINOLONE
     Dosage: 20 MG, UNK
     Route: 065
     Dates: start: 20180221, end: 20180221
  3. TAVOR [Concomitant]
     Indication: PRODUCT USED FOR UNKNOWN INDICATION
     Dosage: 1 MG, UNK
     Route: 065
     Dates: start: 20180221, end: 20180221
  4. TRIAMCINOLONE [Concomitant]
     Active Substance: TRIAMCINOLONE
     Dosage: 40 MG, UNK
     Route: 065
     Dates: start: 20161209, end: 20161209
  5. PANTOZOL [Concomitant]
     Active Substance: PANTOPRAZOLE SODIUM
     Indication: GASTRITIS PROPHYLAXIS
     Dosage: 40 MG,
     Route: 065
     Dates: start: 20150302, end: 20150302
  6. FRAGMIN [Concomitant]
     Active Substance: DALTEPARIN SODIUM
     Indication: THROMBOSIS PROPHYLAXIS
     Dosage: 2500 IE, UNK
     Route: 065
     Dates: start: 20150302, end: 20150302
  7. TRIAMCINOLONE [Concomitant]
     Active Substance: TRIAMCINOLONE
     Indication: MULTIPLE SCLEROSIS
     Dosage: 40 MG, UNK
     Route: 065
     Dates: start: 20150302, end: 20150302
  8. TRIAMCINOLONE [Concomitant]
     Active Substance: TRIAMCINOLONE
     Dosage: 40 MG, UNK
     Route: 065
     Dates: start: 20150612, end: 20150612

REACTIONS (14)
  - Erythema [Unknown]
  - Nasopharyngitis [Recovered/Resolved]
  - Gamma-glutamyltransferase increased [Recovered/Resolved]
  - Lymphocyte percentage decreased [Unknown]
  - Facial pain [Unknown]
  - Vulvovaginal mycotic infection [Recovered/Resolved]
  - Gamma-glutamyltransferase increased [Unknown]
  - Nasopharyngitis [Unknown]
  - Folate deficiency [Unknown]
  - Alanine aminotransferase increased [Recovered/Resolved]
  - Aspartate aminotransferase increased [Recovered/Resolved]
  - Alanine aminotransferase increased [Unknown]
  - Vitamin B12 deficiency [Unknown]
  - Folate deficiency [Recovered/Resolved]

NARRATIVE: CASE EVENT DATE: 20150302
